FAERS Safety Report 4491765-1 (Version None)
Quarter: 2004Q4

REPORT INFORMATION
  Report Type: 
  Country: None (occurrence: None)
  Receive Date: 20041029
  Receipt Date: 20041015
  Transmission Date: 20050328
  Serious: Yes (Hospitalization)
  Sender: FDA-Public Use
  Company Number: S04-ESP-06636-01

PATIENT
  Age: 64 Year
  Sex: Female

DRUGS (4)
  1. ESERTIA (ESCITALOPRAM) [Suspect]
     Indication: DEPRESSION
     Dosage: 10 MG QD PO
     Route: 048
     Dates: start: 20040810, end: 20040821
  2. METOCLOPRAMIDE [Suspect]
     Indication: VOMITING
     Dates: start: 20040813
  3. LORAZEPAM [Concomitant]
  4. ZOPICLONE [Concomitant]

REACTIONS (5)
  - COMA [None]
  - CONFUSIONAL STATE [None]
  - DYSTONIA [None]
  - HYPONATRAEMIA [None]
  - VOMITING [None]
